FAERS Safety Report 7088531-X (Version None)
Quarter: 2010Q4

REPORT INFORMATION
  Report Type: 
  Country: None (occurrence: None)
  Receive Date: 20101108
  Receipt Date: 20101103
  Transmission Date: 20110411
  Serious: Yes (Other)
  Sender: FDA-Public Use
  Company Number: BR-PFIZER INC-2010140474

PATIENT
  Age: 27 Year
  Sex: Female

DRUGS (1)
  1. FELDENE [Suspect]
     Indication: MUSCLE DISORDER
     Dosage: UNK
     Route: 048
     Dates: start: 20101020

REACTIONS (6)
  - GENERALISED ERYTHEMA [None]
  - HYPERSENSITIVITY [None]
  - PRURITUS [None]
  - RASH MACULAR [None]
  - SKIN SENSITISATION [None]
  - WOUND [None]
